FAERS Safety Report 6054507-4 (Version None)
Quarter: 2009Q1

REPORT INFORMATION
  Report Type: 
  Country: None (occurrence: None)
  Receive Date: 20090127
  Receipt Date: 20090114
  Transmission Date: 20090719
  Serious: Yes (Hospitalization, Other)
  Sender: FDA-Public Use
  Company Number: PHHY2009FR01856

PATIENT
  Sex: Male

DRUGS (11)
  1. TEGRETOL [Suspect]
     Dosage: 400 MG, QD
     Route: 048
     Dates: start: 20001218
  2. HALOPERIDOL DECANOATE [Suspect]
     Dosage: UNK
     Route: 048
     Dates: start: 20070601
  3. HALOPERIDOL DECANOATE [Suspect]
     Dosage: UNK
     Route: 042
     Dates: end: 20080928
  4. LEPTICUR [Suspect]
     Dosage: 1 ORAL DOSE
     Route: 048
     Dates: start: 20070601, end: 20081007
  5. LOXAPAC [Suspect]
     Dosage: 50 MG, QD
     Route: 048
     Dates: start: 20070601, end: 20080910
  6. ABILIFY [Suspect]
     Dosage: 5 MG, UNK
     Route: 048
     Dates: start: 20080610, end: 20080825
  7. ABILIFY [Suspect]
     Dosage: 20 MG, QD
     Route: 048
     Dates: start: 20080826
  8. ZYPREXA [Concomitant]
     Dosage: 10 MG, QD
     Dates: start: 20001201, end: 20070601
  9. XATRAL [Concomitant]
     Dosage: 10 MG, UNK
  10. TRANXENE [Concomitant]
  11. SCOPODERM [Concomitant]

REACTIONS (26)
  - AGITATION [None]
  - BRONCHIAL OBSTRUCTION [None]
  - CACHEXIA [None]
  - CATATONIA [None]
  - CONVULSION [None]
  - DYSKINESIA [None]
  - DYSPHAGIA [None]
  - ENDOTRACHEAL INTUBATION [None]
  - EXTRAPYRAMIDAL DISORDER [None]
  - GENERAL PHYSICAL HEALTH DETERIORATION [None]
  - HALLUCINATIONS, MIXED [None]
  - HYPERSOMNIA [None]
  - LUMBAR PUNCTURE [None]
  - MENTAL DISORDER [None]
  - MOVEMENT DISORDER [None]
  - MYOPERICARDITIS [None]
  - NEUROLEPTIC MALIGNANT SYNDROME [None]
  - PROCALCITONIN [None]
  - PYREXIA [None]
  - RESPIRATORY DISORDER [None]
  - RESPIRATORY DISTRESS [None]
  - RESTLESSNESS [None]
  - RHABDOMYOLYSIS [None]
  - SALIVARY HYPERSECRETION [None]
  - TREMOR [None]
  - URINARY RETENTION [None]
